FAERS Safety Report 16722573 (Version 6)
Quarter: 2021Q1

REPORT INFORMATION
  Report Type: Spontaneous
  Country: FR (occurrence: FR)
  Receive Date: 20190820
  Receipt Date: 20210119
  Transmission Date: 20210419
  Serious: Yes (Death, Hospitalization, Other)
  Sender: FDA-Public Use
  Company Number: FR-009507513-1908FRA005137

PATIENT
  Age: 80 Year
  Sex: Male
  Weight: 80 kg

DRUGS (4)
  1. SINEMET L.P. [Suspect]
     Active Substance: CARBIDOPA\LEVODOPA
     Indication: PARKINSON^S DISEASE
     Dosage: 1 DOSAGE FORM, 1 DAY (QD)
     Route: 048
  2. APOMORPHINE HYDROCHLORIDE [Concomitant]
     Active Substance: APOMORPHINE HYDROCHLORIDE
     Indication: PARKINSON^S DISEASE
     Dosage: UNK, REPORTED AS APOMORPHINE AMPOULE
     Dates: start: 201712
  3. APOMORPHINE HYDROCHLORIDE [Suspect]
     Active Substance: APOMORPHINE HYDROCHLORIDE
     Indication: PARKINSON^S DISEASE
     Dosage: 1 DOSAGE FORM, 1 TOTAL, REPORTED AS APOKINON
     Route: 051
     Dates: start: 20190524, end: 201906
  4. NEUPRO [Suspect]
     Active Substance: ROTIGOTINE
     Indication: PARKINSON^S DISEASE
     Dosage: 1 DOSAGE FORM, 1 DAY (QD); STRENGTH: 2 MG/24 H, TRANSDERMAL DEVICE
     Route: 062

REACTIONS (3)
  - Fall [Fatal]
  - Drug ineffective [Fatal]
  - Bedridden [Fatal]

NARRATIVE: CASE EVENT DATE: 201906
